FAERS Safety Report 5121602-3 (Version None)
Quarter: 2006Q4

REPORT INFORMATION
  Report Type: 
  Country: None (occurrence: None)
  Receive Date: 20061006
  Receipt Date: 20060925
  Transmission Date: 20070319
  Serious: Yes (Hospitalization)
  Sender: FDA-Public Use
  Company Number: AT-JNJFOC-20060905705

PATIENT
  Sex: Female
  Weight: 100 kg

DRUGS (5)
  1. REMICADE [Suspect]
     Indication: CROHN'S DISEASE
     Dosage: 1ST INFUSION
     Route: 042
  2. IMUREK [Concomitant]
     Indication: CROHN'S DISEASE
     Route: 048
  3. NEXIUM [Concomitant]
     Route: 048
  4. TRESLEEN [Concomitant]
     Indication: DEPRESSION
     Route: 048
  5. TRITTICO [Concomitant]
     Route: 048

REACTIONS (5)
  - LOCAL SWELLING [None]
  - OEDEMA PERIPHERAL [None]
  - PRURITUS [None]
  - RASH [None]
  - SWELLING FACE [None]
